FAERS Safety Report 10419796 (Version 1)
Quarter: 2014Q2

REPORT INFORMATION
  Report Type: Spontaneous
  Country: US (occurrence: None)
  Receive Date: 20140625
  Receipt Date: 20140625
  Transmission Date: 20141212
  Serious: Yes (Hospitalization)
  Sender: FDA-Public Use
  Company Number: PHEH2014US006773

PATIENT
  Age: 58 Year
  Sex: Female

DRUGS (4)
  1. AFINITOR (RAD) UNKNOWN [Suspect]
  2. FOLIC ACID [Concomitant]
  3. SPIRULINA (SPIRULINA SPP.) [Concomitant]
  4. L-THEANINE (THEANINE) [Concomitant]

REACTIONS (1)
  - Respiratory tract infection [None]
